FAERS Safety Report 5718426-2 (Version None)
Quarter: 2008Q2

REPORT INFORMATION
  Report Type: 
  Country: None (occurrence: None)
  Receive Date: 20080425
  Receipt Date: 20080401
  Transmission Date: 20081010
  Serious: Yes (Hospitalization, Other)
  Sender: FDA-Public Use
  Company Number: US-JNJFOC-20080401641

PATIENT
  Sex: Female

DRUGS (2)
  1. ORTHO EVRA [Suspect]
     Indication: DRUG USE FOR UNKNOWN INDICATION
     Route: 062
  2. ALLEGRA [Concomitant]
     Route: 065

REACTIONS (4)
  - CHEST PAIN [None]
  - DEEP VEIN THROMBOSIS [None]
  - DYSPNOEA [None]
  - SYNCOPE [None]
